FAERS Safety Report 4416513-2 (Version None)
Quarter: 2004Q2

REPORT INFORMATION
  Report Type: 
  Country: None (occurrence: None)
  Receive Date: 20040630
  Receipt Date: 20040507
  Transmission Date: 20050107
  Serious: No
  Sender: FDA-Public Use
  Company Number: 04P-163-0250054-00

PATIENT
  Age: 57 Year
  Sex: Male

DRUGS (6)
  1. HUMIRA [Suspect]
     Dosage: 40 MG, SUBCUTANEOUS
     Route: 058
     Dates: start: 20030201, end: 20030401
  2. ETANERCEPT [Suspect]
     Indication: RHEUMATOID ARTHRITIS
     Dosage: 25 MG, 2 IN 1 WK; 25 MG, 2 IN 1 WK
     Dates: start: 20010601, end: 20030201
  3. PREDNISONE [Suspect]
     Dates: start: 20001201, end: 20030701
  4. METHOTREXATE [Suspect]
     Dates: start: 20000401, end: 20030701
  5. BUCINDOLOL HYDROCHLORIDE [Concomitant]
  6. ALENDRONATE SODIUM [Concomitant]

REACTIONS (1)
  - DIFFUSE LARGE B-CELL LYMPHOMA STAGE III [None]
